FAERS Safety Report 9325280 (Version 3)
Quarter: 2014Q1

REPORT INFORMATION
  Report Type: Report from Study
  Country: US (occurrence: US)
  Receive Date: 20130604
  Receipt Date: 20140221
  Transmission Date: 20141002
  Serious: Yes (Hospitalization, Other)
  Sender: FDA-Public Use
  Company Number: US-BIOGENIDEC-2013BI048140

PATIENT
  Age: 38 Year
  Sex: Female
  Weight: 95 kg

DRUGS (14)
  1. TYSABRI [Suspect]
     Indication: CROHN^S DISEASE
     Route: 042
     Dates: start: 20120525
  2. PROBIOTIC [Concomitant]
     Route: 048
  3. CALCITRIOL [Concomitant]
     Route: 048
  4. CALCIUM AND VITAMIN D [Concomitant]
     Route: 048
  5. CARBINOXAMINE MALEATE [Concomitant]
     Route: 048
  6. HEXAVITAMIN [Concomitant]
     Route: 048
  7. SYNTHROID [Concomitant]
     Route: 048
  8. ATIVAN [Concomitant]
     Indication: ANXIETY
     Route: 048
  9. ATIVAN [Concomitant]
     Indication: AGITATION
     Route: 048
  10. MAG-OX [Concomitant]
     Route: 048
  11. ZOFRAN [Concomitant]
     Route: 048
  12. K-DUR [Concomitant]
     Route: 048
  13. PREDNISONE [Concomitant]
     Route: 048
  14. PREPARATION H [Concomitant]
     Route: 061

REACTIONS (3)
  - Blood calcium decreased [Recovered/Resolved]
  - Staphylococcal infection [Recovered/Resolved]
  - Renal failure acute [Unknown]
